FAERS Safety Report 5127951-7 (Version None)
Quarter: 2006Q4

REPORT INFORMATION
  Report Type: 
  Country: None (occurrence: None)
  Receive Date: 20061016
  Receipt Date: 20061005
  Transmission Date: 20070319
  Serious: Yes (Hospitalization)
  Sender: FDA-Public Use
  Company Number: CA-BOEHRINGER INGELHEIM PHARMACEUTICALS, INC.-2006-CN-00527CN

PATIENT
  Sex: Female

DRUGS (5)
  1. MICARDIS [Suspect]
     Indication: HYPERTENSION
     Dates: start: 20060606
  2. PERINDOPRIL ERBUMINE [Concomitant]
  3. ADALAT [Concomitant]
  4. APO-ATENOL [Concomitant]
  5. APO-FERROUS [Concomitant]

REACTIONS (3)
  - HAEMORRHAGE [None]
  - KNEE OPERATION [None]
  - LOSS OF CONSCIOUSNESS [None]
